FAERS Safety Report 13695572 (Version 1)
Quarter: 2017Q2

REPORT INFORMATION
  Report Type: Report from Study
  Country: DE (occurrence: DE)
  Receive Date: 20170627
  Receipt Date: 20170627
  Transmission Date: 20170830
  Serious: Yes (Hospitalization)
  Sender: FDA-Public Use
  Company Number: DE-BRISTOL-MYERS SQUIBB COMPANY-BMS-2017-051194

PATIENT
  Age: 76 Year
  Sex: Female
  Weight: 86.9 kg

DRUGS (10)
  1. NIVOLUMAB [Suspect]
     Active Substance: NIVOLUMAB
     Indication: MALIGNANT MELANOMA
     Dosage: 86.900 UNIT, UNK
     Route: 042
     Dates: start: 20170421
  2. OPTIDERM                           /00761901/ [Concomitant]
     Indication: DRUG ERUPTION
     Dosage: UNK
     Route: 061
     Dates: start: 20170430
  3. PRADAXA [Concomitant]
     Active Substance: DABIGATRAN ETEXILATE MESYLATE
     Indication: ATRIAL FIBRILLATION
     Dosage: 300 MG, UNK
     Route: 048
     Dates: start: 20170517
  4. ECURAL [Concomitant]
     Active Substance: MOMETASONE
     Indication: DRUG ERUPTION
     Dosage: UNK
     Route: 061
     Dates: start: 20170430
  5. PRAMIPEXOL [Concomitant]
     Active Substance: PRAMIPEXOLE
     Indication: PARKINSON^S DISEASE
     Dosage: 0.7 MG, UNK
     Route: 048
     Dates: start: 20170517
  6. LOPERAMID AKUT [Concomitant]
     Indication: DIARRHOEA
     Dosage: 8 MG, UNK
     Route: 048
     Dates: start: 20170517
  7. IPILIMUMAB [Suspect]
     Active Substance: IPILIMUMAB
     Indication: MALIGNANT MELANOMA
     Dosage: 260.700 UNIT, UNK
     Route: 042
     Dates: start: 20170421
  8. METOHEXAL SUCC [Concomitant]
     Active Substance: METOPROLOL SUCCINATE
     Indication: SUPRAVENTRICULAR TACHYCARDIA
     Dosage: 95 MG, UNK
     Route: 048
     Dates: start: 20170517
  9. HCT [Concomitant]
     Active Substance: HYDROCHLOROTHIAZIDE
     Indication: SUPRAVENTRICULAR TACHYCARDIA
     Dosage: 125 MG, UNK
     Route: 048
     Dates: start: 20170517
  10. URBASON                            /00049601/ [Concomitant]
     Active Substance: METHYLPREDNISOLONE
     Indication: DIARRHOEA
     Dosage: 80 MG, UNK
     Route: 048
     Dates: start: 20170524

REACTIONS (1)
  - Endocrine disorder [Recovered/Resolved]

NARRATIVE: CASE EVENT DATE: 20170607
